FAERS Safety Report 4860644-X (Version None)
Quarter: 2005Q4

REPORT INFORMATION
  Report Type: 
  Country: None (occurrence: None)
  Receive Date: 20051216
  Receipt Date: 20051129
  Transmission Date: 20060501
  Serious: Yes (Death, Other)
  Sender: FDA-Public Use
  Company Number: 200512775BWH

PATIENT

DRUGS (1)
  1. AVELOX [Suspect]

REACTIONS (3)
  - CARDIAC ARREST [None]
  - DYSPNOEA [None]
  - MYOCARDIAL INFARCTION [None]
